FAERS Safety Report 9103858 (Version 1)
Quarter: 2013Q1

REPORT INFORMATION
  Report Type: Spontaneous
  Country: US (occurrence: US)
  Receive Date: 20130219
  Receipt Date: 20130219
  Transmission Date: 20140127
  Serious: Yes (Other)
  Sender: FDA-Public Use
  Company Number: US-PFIZER INC-2013057678

PATIENT
  Age: 3 Year
  Sex: Male

DRUGS (5)
  1. SILVADENE [Suspect]
     Indication: THERMAL BURN
     Dosage: UNK
     Route: 061
  2. THERMAZENE [Suspect]
     Indication: THERMAL BURN
     Route: 061
  3. SSD CREAM [Suspect]
     Indication: THERMAL BURN
     Route: 061
  4. NYSTATIN [Concomitant]
     Indication: THERMAL BURN
     Dosage: UNK
     Route: 061
  5. LORAZEPAM [Concomitant]
     Dosage: UNK

REACTIONS (2)
  - Lactic acidosis [Recovered/Resolved]
  - Toxicity to various agents [Unknown]
